FAERS Safety Report 11283073 (Version 1)
Quarter: 2015Q3

REPORT INFORMATION
  Report Type: Spontaneous
  Country: US (occurrence: None)
  Receive Date: 20150717
  Receipt Date: 20150717
  Transmission Date: 20151125
  Serious: Yes (Hospitalization)
  Sender: FDA-Public Use
  Company Number: None

PATIENT
  Age: 76 Year
  Sex: Male
  Weight: 87.1 kg

DRUGS (18)
  1. VITAMIN B12-FOLIC ACID [Concomitant]
  2. POTASSIUM CHLORIDE. [Concomitant]
     Active Substance: POTASSIUM CHLORIDE
  3. TOLTERODINE [Concomitant]
     Active Substance: TOLTERODINE
  4. ALBUTEROL. [Concomitant]
     Active Substance: ALBUTEROL
  5. HYDROMORPHONE [Concomitant]
     Active Substance: HYDROMORPHONE
  6. ACETAMINOPHEN. [Concomitant]
     Active Substance: ACETAMINOPHEN
  7. FLUTICASONE [Concomitant]
     Active Substance: FLUTICASONE\FLUTICASONE PROPIONATE
  8. POLYETHYLENE GLYCOL [Concomitant]
     Active Substance: POLYETHYLENE GLYCOLS
  9. ALLOPURINOL. [Concomitant]
     Active Substance: ALLOPURINOL
  10. MULTIVITAMIN [Concomitant]
     Active Substance: VITAMINS
  11. SERTRALINE [Concomitant]
     Active Substance: SERTRALINE HYDROCHLORIDE
  12. SIMVASTATIN. [Concomitant]
     Active Substance: SIMVASTATIN
  13. LOPERAMIDE [Concomitant]
     Active Substance: LOPERAMIDE
  14. TAMSULOSIN [Concomitant]
     Active Substance: TAMSULOSIN
  15. CELECOXIB. [Concomitant]
     Active Substance: CELECOXIB
  16. FUROSEMIDE. [Concomitant]
     Active Substance: FUROSEMIDE
  17. RUXOLITINIB 5 MG TABS [Suspect]
     Active Substance: RUXOLITINIB
     Indication: CHRONIC MYELOID LEUKAEMIA
     Route: 048
     Dates: start: 20150616, end: 20150713
  18. FINASTERIDE. [Concomitant]
     Active Substance: FINASTERIDE

REACTIONS (8)
  - Musculoskeletal pain [None]
  - Muscular weakness [None]
  - JC virus infection [None]
  - Mental status changes [None]
  - Neck pain [None]
  - Dizziness [None]
  - Cervical radiculopathy [None]
  - Progressive multifocal leukoencephalopathy [None]

NARRATIVE: CASE EVENT DATE: 20150713
